FAERS Safety Report 14286321 (Version 2)
Quarter: 2018Q1

REPORT INFORMATION
  Report Type: Spontaneous
  Country: JP (occurrence: JP)
  Receive Date: 20171214
  Receipt Date: 20180126
  Transmission Date: 20180509
  Serious: Yes (Other)
  Sender: FDA-Public Use
  Company Number: JP-ASTELLAS-2017JP019628

PATIENT
  Age: 88 Year
  Sex: Female
  Weight: 53 kg

DRUGS (8)
  1. MAXIPIME [Suspect]
     Active Substance: CEFEPIME HYDROCHLORIDE
     Indication: PYELONEPHRITIS
     Dosage: 1000 MG/DAY, THRICE DAILY
     Route: 065
     Dates: start: 20170815, end: 20170819
  2. FUNGUARD [Suspect]
     Active Substance: MICAFUNGIN SODIUM
     Indication: SYSTEMIC CANDIDA
     Route: 041
     Dates: start: 20170804, end: 20170819
  3. OMEPRAZOLE                         /00661202/ [Suspect]
     Active Substance: OMEPRAZOLE SODIUM
     Indication: ABDOMINAL DISCOMFORT
     Route: 065
     Dates: start: 20170721, end: 20170819
  4. ELIQUIS [Concomitant]
     Active Substance: APIXABAN
     Indication: ATRIAL FIBRILLATION
     Route: 048
     Dates: start: 20170718
  5. DILTIAZEM HYDROCHLORIDE. [Concomitant]
     Active Substance: DILTIAZEM HYDROCHLORIDE
     Indication: ATRIAL FIBRILLATION
     Route: 065
     Dates: start: 20170718
  6. FASTIC [Concomitant]
     Active Substance: NATEGLINIDE
     Indication: DIABETES MELLITUS
     Route: 048
     Dates: start: 20170718
  7. LYRICA [Concomitant]
     Active Substance: PREGABALIN
     Indication: OSTEOARTHRITIS
     Route: 048
     Dates: start: 20170718
  8. FUROSEMIDE. [Concomitant]
     Active Substance: FUROSEMIDE
     Indication: PRODUCT USED FOR UNKNOWN INDICATION
     Route: 048
     Dates: start: 20170718

REACTIONS (2)
  - Drug eruption [Recovering/Resolving]
  - Pyelonephritis [Unknown]

NARRATIVE: CASE EVENT DATE: 20170815
